FAERS Safety Report 5914090-8 (Version None)
Quarter: 2008Q4

REPORT INFORMATION
  Report Type: 
  Country: None (occurrence: None)
  Receive Date: 20081009
  Receipt Date: 20080929
  Transmission Date: 20090506
  Serious: Yes (Other)
  Sender: FDA-Public Use
  Company Number: US-JNJFOC-20080603727

PATIENT
  Sex: Female
  Weight: 56.25 kg

DRUGS (27)
  1. REMICADE [Suspect]
     Route: 042
  2. REMICADE [Suspect]
     Route: 042
  3. REMICADE [Suspect]
     Route: 042
  4. REMICADE [Suspect]
     Route: 042
  5. REMICADE [Suspect]
     Route: 042
  6. REMICADE [Suspect]
     Route: 042
  7. REMICADE [Suspect]
     Route: 042
  8. REMICADE [Suspect]
     Route: 042
  9. REMICADE [Suspect]
     Route: 042
  10. REMICADE [Suspect]
     Route: 042
  11. REMICADE [Suspect]
     Route: 042
  12. REMICADE [Suspect]
     Route: 042
  13. REMICADE [Suspect]
     Route: 042
  14. REMICADE [Suspect]
     Route: 042
  15. REMICADE [Suspect]
     Indication: PSORIATIC ARTHROPATHY
     Route: 042
  16. CENTRUM [Concomitant]
  17. METHOTREXATE SODIUM [Concomitant]
  18. LEUCOVORIN CALCIUM [Concomitant]
  19. AZULFIDINE EN-TABS [Concomitant]
  20. VOLTAREN [Concomitant]
  21. HYDROCHLOROTHIAZIDE [Concomitant]
  22. DEPO-PROVERA [Concomitant]
  23. NEXIUM [Concomitant]
  24. CALCIUM/VITAMIN D [Concomitant]
  25. DICLOFENAC [Concomitant]
  26. ZYRTEC [Concomitant]
     Indication: PREMEDICATION
  27. SOLU-CORTEF [Concomitant]
     Indication: PREMEDICATION
     Route: 042

REACTIONS (3)
  - COLITIS COLLAGENOUS [None]
  - DIVERTICULUM [None]
  - OESOPHAGITIS [None]
